FAERS Safety Report 8834323 (Version 3)
Quarter: 2014Q2

REPORT INFORMATION
  Report Type: Spontaneous
  Country: JP (occurrence: JP)
  Receive Date: 20121010
  Receipt Date: 20131018
  Transmission Date: 20141212
  Serious: Yes (Other)
  Sender: FDA-Public Use
  Company Number: JP-PFIZER INC-2012247718

PATIENT
  Age: 41 Year
  Sex: Female

DRUGS (1)
  1. MORPHINE SULFATE [Suspect]
     Indication: PAIN
     Dosage: 200 MG/DAY
     Route: 042

REACTIONS (2)
  - Toxicity to various agents [Unknown]
  - Depressed level of consciousness [Unknown]
